FAERS Safety Report 10084608 (Version 2)
Quarter: 2014Q2

REPORT INFORMATION
  Report Type: Spontaneous
  Country: RS (occurrence: RS)
  Receive Date: 20140417
  Receipt Date: 20140523
  Transmission Date: 20141212
  Serious: Yes (Other)
  Sender: FDA-Public Use
  Company Number: RS-ABBVIE-14P-303-1224340-00

PATIENT
  Age: 20 Year
  Sex: Male

DRUGS (1)
  1. HUMIRA [Suspect]
     Indication: CROHN^S DISEASE
     Route: 058
     Dates: start: 20130211

REACTIONS (4)
  - Balanoposthitis [Recovering/Resolving]
  - Dermatitis atopic [Recovered/Resolved]
  - Skin exfoliation [Recovering/Resolving]
  - Oedema genital [Recovering/Resolving]
